FAERS Safety Report 9170715 (Version 1)
Quarter: 2013Q1

REPORT INFORMATION
  Report Type: Spontaneous
  Country: US (occurrence: None)
  Receive Date: 20130308
  Receipt Date: 20130308
  Transmission Date: 20140127
  Serious: Yes (Hospitalization)
  Sender: FDA-Public Use
  Company Number: UTC-027868

PATIENT
  Age: 68 Year
  Sex: Female
  Weight: 113.6 kg

DRUGS (3)
  1. TYVASO (6 MICROGRAM, AEROSOL FOR INHALATION) (TREPROSTINIL SODIUM) [Suspect]
     Indication: COR PULMONALE CHRONIC
     Route: 055
     Dates: start: 20121214
  2. TYVASO (6 MICROGRAM, AEROSOL FOR INHALATION) (TREPROSTINIL SODIUM) [Suspect]
     Indication: PULMONARY HYPERTENSION
     Route: 055
     Dates: start: 20121214
  3. ADCIRCA (TADALAFIL) [Concomitant]

REACTIONS (5)
  - Bronchitis [None]
  - Local swelling [None]
  - Pneumonia [None]
  - Oropharyngeal pain [None]
  - Swelling [None]
